FAERS Safety Report 16109746 (Version 2)
Quarter: 2019Q1

REPORT INFORMATION
  Report Type: Spontaneous
  Country: FR (occurrence: FR)
  Receive Date: 20190325
  Receipt Date: 20190326
  Transmission Date: 20190418
  Serious: Yes (Death)
  Sender: FDA-Public Use
  Company Number: FR-ABBVIE-19K-056-2714721-00

PATIENT
  Age: 70 Year
  Sex: Female

DRUGS (1)
  1. VENCLYXTO [Suspect]
     Active Substance: VENETOCLAX
     Indication: CHRONIC LYMPHOCYTIC LEUKAEMIA
     Route: 048
     Dates: start: 201812

REACTIONS (1)
  - Death [Fatal]

NARRATIVE: CASE EVENT DATE: 201902
